FAERS Safety Report 8764251 (Version 1)
Quarter: 2012Q4

REPORT INFORMATION
  Report Type: 
  Country: US (occurrence: US)
  Receive Date: 20120831
  Receipt Date: 20120831
  Transmission Date: 20130627
  Serious: Yes (Other)
  Sender: FDA-Public Use
  Company Number: US-TEVA-355997USA

PATIENT
  Sex: Female

DRUGS (1)
  1. COPAXONE [Suspect]
     Indication: MULTIPLE SCLEROSIS

REACTIONS (6)
  - Convulsion [Unknown]
  - Paraesthesia [Unknown]
  - Movement disorder [Unknown]
  - Syncope [Unknown]
  - Hypersomnia [Unknown]
  - Injection site vesicles [Unknown]
